FAERS Safety Report 23491106 (Version 2)
Quarter: 2024Q2

REPORT INFORMATION
  Report Type: Report from Study
  Country: BE (occurrence: BE)
  Receive Date: 20240207
  Receipt Date: 20240627
  Transmission Date: 20240716
  Serious: Yes (Hospitalization, Other)
  Sender: FDA-Public Use
  Company Number: BE-ABBVIE-5620286

PATIENT
  Sex: Female
  Weight: 57 kg

DRUGS (10)
  1. CARBIDOPA\LEVODOPA [Suspect]
     Active Substance: CARBIDOPA\LEVODOPA
     Indication: Parkinson^s disease
     Dosage: MD: 10.5 ML, CD: 4.2 ML/H, ED: 3.0 ML REMAINS AT 16 HOURS
     Route: 050
     Dates: start: 20230626, end: 20231107
  2. CARBIDOPA\LEVODOPA [Suspect]
     Active Substance: CARBIDOPA\LEVODOPA
     Route: 050
     Dates: start: 20220307
  3. CARBIDOPA\LEVODOPA [Suspect]
     Active Substance: CARBIDOPA\LEVODOPA
     Dosage: MD: 10.5 ML, CD: 4.2 ML/H, ED: 3.0 ML REMAINS AT 16 HOURS
     Route: 050
     Dates: start: 20231107, end: 20240221
  4. CARBIDOPA\LEVODOPA [Suspect]
     Active Substance: CARBIDOPA\LEVODOPA
     Dosage: MD: 10.5 ML, CD: 4.2 ML/H, ED: 3.0 ML REMAINS AT 16 HOURS
     Route: 050
     Dates: start: 20240221
  5. ELDEPRYL [Concomitant]
     Active Substance: SELEGILINE HYDROCHLORIDE
     Indication: Parkinson^s disease
     Route: 048
  6. BENSERAZIDE\LEVODOPA [Concomitant]
     Active Substance: BENSERAZIDE\LEVODOPA
     Indication: Parkinson^s disease
     Dosage: FREQUENCY TEXT: 1X1 UNKNOWN
     Route: 048
  7. BENSERAZIDE\LEVODOPA [Concomitant]
     Active Substance: BENSERAZIDE\LEVODOPA
     Indication: Parkinson^s disease
     Dosage: DISPERSIBLE?FREQUENCY TEXT: 1X1 UNKNOWN
  8. STALEVO [Concomitant]
     Active Substance: CARBIDOPA\ENTACAPONE\LEVODOPA
     Indication: Parkinson^s disease
     Route: 048
  9. PRAMIPEXOLE [Concomitant]
     Active Substance: PRAMIPEXOLE\PRAMIPEXOLE DIHYDROCHLORIDE
     Indication: Parkinson^s disease
     Dosage: DOSE: 2.1 MG
     Route: 048
  10. Pantomed [Concomitant]
     Indication: Gastrointestinal disorder
     Dosage: FREQUENCY TEXT: 1X1 UNKNOWN
     Route: 048

REACTIONS (2)
  - Pelvic fracture [Unknown]
  - Fall [Unknown]
